FAERS Safety Report 9435617 (Version 2)
Quarter: 2013Q3

REPORT INFORMATION
  Report Type: Spontaneous
  Country: US (occurrence: US)
  Receive Date: 20130801
  Receipt Date: 20130809
  Transmission Date: 20140515
  Serious: No
  Sender: FDA-Public Use
  Company Number: US-BAXTER-2013BAX029720

PATIENT
  Sex: Male

DRUGS (2)
  1. FEIBA [Suspect]
     Indication: PRODUCT USED FOR UNKNOWN INDICATION
     Route: 042
  2. FEIBA [Suspect]
     Route: 042

REACTIONS (5)
  - Infusion site bruising [Not Recovered/Not Resolved]
  - Infusion site swelling [Not Recovered/Not Resolved]
  - Vein disorder [Not Recovered/Not Resolved]
  - Device issue [Unknown]
  - Product reconstitution issue [Unknown]
